FAERS Safety Report 4696210-9 (Version None)
Quarter: 2005Q2

REPORT INFORMATION
  Report Type: 
  Country: None (occurrence: None)
  Receive Date: 20050621
  Receipt Date: 20050603
  Transmission Date: 20051028
  Serious: No
  Sender: FDA-Public Use
  Company Number: 2005AP03220

PATIENT
  Age: 79 Year
  Sex: Female

DRUGS (6)
  1. TENORMIN [Suspect]
     Indication: HYPERTENSION
     Route: 048
     Dates: start: 20050210, end: 20050101
  2. MEVALOTIN [Concomitant]
     Route: 048
     Dates: start: 20040226
  3. PROTECADIN [Concomitant]
     Route: 048
     Dates: start: 20040226
  4. SHAKUYAKU-KANZO-TO [Concomitant]
     Route: 048
     Dates: start: 20040707
  5. ATELEC [Concomitant]
     Route: 048
     Dates: start: 20040720, end: 20050310
  6. DIOVAN [Concomitant]
     Route: 048
     Dates: start: 20040913

REACTIONS (4)
  - ALANINE AMINOTRANSFERASE INCREASED [None]
  - ASPARTATE AMINOTRANSFERASE INCREASED [None]
  - BLOOD ALKALINE PHOSPHATASE INCREASED [None]
  - HEPATIC FUNCTION ABNORMAL [None]
